FAERS Safety Report 6237727-5 (Version None)
Quarter: 2009Q2

REPORT INFORMATION
  Report Type: 
  Country: None (occurrence: None)
  Receive Date: 20090617
  Receipt Date: 20090604
  Transmission Date: 20091009
  Serious: Yes (Life-Threatening, Hospitalization, Other)
  Sender: FDA-Public Use
  Company Number: POMP-1000616

PATIENT
  Age: 1 Year
  Sex: Female
  Weight: 7.3 kg

DRUGS (6)
  1. MYOZYME [Suspect]
     Indication: GLYCOGEN STORAGE DISEASE TYPE II
     Dosage: 20 MG/KG, Q2W, INTRAVENOUS
     Route: 042
     Dates: start: 20081218, end: 20090522
  2. TYLENOL [Concomitant]
  3. BENADRYL [Concomitant]
  4. METHYLPREDNISOLONE [Concomitant]
  5. DIGOXIN (BETA-ACETYLDIGOXIN) [Concomitant]
  6. RANITIDINE [Concomitant]

REACTIONS (7)
  - ATELECTASIS [None]
  - GASTROOESOPHAGEAL REFLUX DISEASE [None]
  - GENERAL PHYSICAL HEALTH DETERIORATION [None]
  - LETHARGY [None]
  - NO THERAPEUTIC RESPONSE [None]
  - PNEUMONIA ASPIRATION [None]
  - VOMITING [None]
